FAERS Safety Report 4282137-3 (Version None)
Quarter: 2004Q1

REPORT INFORMATION
  Report Type: 
  Country: None (occurrence: None)
  Receive Date: 20040112
  Receipt Date: 20030821
  Transmission Date: 20041129
  Serious: Yes (Other)
  Sender: FDA-Public Use
  Company Number: US-JNJFOC-20030805201

PATIENT

DRUGS (1)
  1. REOPRO [Suspect]

REACTIONS (1)
  - PLATELET COUNT DECREASED [None]
